FAERS Safety Report 9269147 (Version 3)
Quarter: 2013Q2

REPORT INFORMATION
  Report Type: Spontaneous
  Country: US (occurrence: None)
  Receive Date: 20130429
  Receipt Date: 20130513
  Transmission Date: 20140414
  Serious: Yes (Death, Other)
  Sender: FDA-Public Use
  Company Number: US-JNJFOC-20130410079

PATIENT
  Age: 82 Year
  Sex: Female

DRUGS (2)
  1. DECITABINE (DECITABINE) LYOPHILIZED POWDER [Suspect]
     Indication: ACUTE MYELOID LEUKAEMIA
     Route: 042
  2. VORICONAZOLE [Suspect]
     Indication: ACUTE MYELOID LEUKAEMIA
     Route: 048

REACTIONS (14)
  - Pancytopenia [None]
  - Soft tissue infection [None]
  - Condition aggravated [None]
  - Skin exfoliation [None]
  - Fasciitis [None]
  - Inflammation [None]
  - Drug ineffective [None]
  - Leg amputation [None]
  - Acute myeloid leukaemia [None]
  - Pneumonia [None]
  - Respiratory failure [None]
  - Febrile neutropenia [None]
  - Infection [None]
  - Skin necrosis [None]
